FAERS Safety Report 24365635 (Version 1)
Quarter: 2024Q3

REPORT INFORMATION
  Report Type: Spontaneous
  Country: US (occurrence: US)
  Receive Date: 20240926
  Receipt Date: 20240926
  Transmission Date: 20241016
  Serious: No
  Sender: AUROBINDO
  Company Number: US-AUROBINDO-AUR-APL-2024-016808

PATIENT
  Sex: Female

DRUGS (1)
  1. SUMATRIPTAN [Suspect]
     Active Substance: SUMATRIPTAN\SUMATRIPTAN SUCCINATE
     Indication: Migraine
     Dosage: UNK (TO TAKE 1 FULL TABLET OF THE 100MG TABLET AT MIGRAINE ONSET, 2- 3 TIMES)
     Route: 065

REACTIONS (2)
  - Drug ineffective [Unknown]
  - Product formulation issue [Unknown]
